FAERS Safety Report 10344094 (Version 2)
Quarter: 2014Q4

REPORT INFORMATION
  Report Type: Report from Study
  Country: FR (occurrence: None)
  Receive Date: 20140724
  Receipt Date: 20141120
  Transmission Date: 20150528
  Serious: Yes (Hospitalization)
  Sender: FDA-Public Use
  Company Number: FR-2014-1836

PATIENT
  Age: 1 Month
  Sex: Female
  Weight: 5.48 kg

DRUGS (1)
  1. CHLORHYDRATE DE PROPRANOLOL PIERRE FABRE DERMATOLOGIE (PROPRANOLOL) ORAL SOLUTION [Suspect]
     Active Substance: PROPRANOLOL HYDROCHLORIDE
     Indication: HAEMANGIOMA
     Dosage: 2 MG/KG, (1/DAY)
     Route: 048
     Dates: start: 20140311

REACTIONS (7)
  - Decreased activity [None]
  - Pallor [None]
  - Diarrhoea [None]
  - Malaise [None]
  - Respiratory arrest [None]
  - Unevaluable event [None]
  - Eye movement disorder [None]

NARRATIVE: CASE EVENT DATE: 20140315
